FAERS Safety Report 24845315 (Version 2)
Quarter: 2025Q2

REPORT INFORMATION
  Report Type: Spontaneous
  Country: DE (occurrence: DE)
  Receive Date: 20250115
  Receipt Date: 20250617
  Transmission Date: 20250717
  Serious: Yes (Life-Threatening, Hospitalization)
  Sender: PFIZER
  Company Number: DE-DCGMA-24204527

PATIENT
  Age: 51 Year
  Sex: Female

DRUGS (2)
  1. CLINDAMYCIN HYDROCHLORIDE [Suspect]
     Active Substance: CLINDAMYCIN HYDROCHLORIDE
     Indication: Dental operation
     Dosage: DAILY DOSE: 1 {DF} EVERY 00:00:01
     Route: 048
     Dates: start: 20241217
  2. LEVOTHYROXINE SODIUM [Concomitant]
     Active Substance: LEVOTHYROXINE SODIUM
     Indication: Hypothyroidism
     Route: 048

REACTIONS (7)
  - Product use issue [Recovered/Resolved]
  - Necrotising oesophagitis [Recovered/Resolved]
  - Foreign body in throat [Recovered/Resolved]
  - Chest pain [Recovered/Resolved]
  - Sensation of foreign body [Recovered/Resolved]
  - Oesophagitis [Recovered/Resolved]
  - Off label use [Unknown]

NARRATIVE: CASE EVENT DATE: 20241217
